FAERS Safety Report 20518035 (Version 1)
Quarter: 2022Q1

REPORT INFORMATION
  Report Type: Report from Study
  Country: TH (occurrence: None)
  Receive Date: 20220225
  Receipt Date: 20220225
  Transmission Date: 20220423
  Serious: Yes (Hospitalization)
  Sender: FDA-Public Use
  Company Number: 2022A084080

PATIENT
  Age: 19267 Day
  Sex: Male

DRUGS (1)
  1. TAGRISSO [Suspect]
     Active Substance: OSIMERTINIB
     Indication: Breast cancer
     Route: 048
     Dates: start: 20200430

REACTIONS (11)
  - Blood electrolytes decreased [Not Recovered/Not Resolved]
  - Decreased appetite [Not Recovered/Not Resolved]
  - Feeding disorder [Not Recovered/Not Resolved]
  - Nausea [Not Recovered/Not Resolved]
  - Vomiting [Not Recovered/Not Resolved]
  - Immune system disorder [Recovered/Resolved with Sequelae]
  - Dizziness [Unknown]
  - Pruritus allergic [Unknown]
  - Pain [Unknown]
  - Platelet count decreased [Unknown]
  - Product dose omission in error [Recovered/Resolved with Sequelae]

NARRATIVE: CASE EVENT DATE: 20220219
